FAERS Safety Report 6399163-0 (Version None)
Quarter: 2009Q4

REPORT INFORMATION
  Report Type: 
  Country: None (occurrence: None)
  Receive Date: 20091008
  Receipt Date: 20090918
  Transmission Date: 20100525
  Serious: Yes (Disabling)
  Sender: FDA-Public Use
  Company Number: OSCN-NO-0701S-0042

PATIENT
  Age: 22 Year
  Sex: Female
  Weight: 60 kg

DRUGS (1)
  1. OMNISCAN [Suspect]
     Indication: RENAL TRANSPLANT
     Dosage: 40 ML, SINGLE DOSE, IV
     Route: 042
     Dates: start: 20051221, end: 20051221

REACTIONS (5)
  - ACTIVITIES OF DAILY LIVING IMPAIRED [None]
  - INFUSION RELATED REACTION [None]
  - NEPHROGENIC SYSTEMIC FIBROSIS [None]
  - RENAL IMPAIRMENT [None]
  - RENAL TRANSPLANT [None]
